FAERS Safety Report 4998611-8 (Version None)
Quarter: 2006Q2

REPORT INFORMATION
  Report Type: 
  Country: None (occurrence: None)
  Receive Date: 20060508
  Receipt Date: 20060421
  Transmission Date: 20061013
  Serious: Yes (Hospitalization)
  Sender: FDA-Public Use
  Company Number: 224658

PATIENT
  Sex: 0

DRUGS (1)
  1. HERCEPTIN [Suspect]
     Dosage: SEE IMAGE
     Route: 042

REACTIONS (4)
  - ANXIETY [None]
  - DEHYDRATION [None]
  - INFLUENZA LIKE ILLNESS [None]
  - NAUSEA [None]
